FAERS Safety Report 9500405 (Version 1)
Quarter: 2013Q1

REPORT INFORMATION
  Report Type: Spontaneous
  Country: US (occurrence: None)
  Receive Date: 20130107
  Receipt Date: 20130107
  Transmission Date: 20140127
  Serious: Yes (Other)
  Sender: FDA-Public Use
  Company Number: PHEH2012US017790

PATIENT
  Age: 47 Year
  Sex: Female

DRUGS (2)
  1. GILENYA (FTY) [Suspect]
     Indication: MULTIPLE SCLEROSIS
     Route: 048
     Dates: start: 201203
  2. FAMPRIDINE [Concomitant]

REACTIONS (1)
  - Depression [None]
